FAERS Safety Report 5967966-X (Version None)
Quarter: 2008Q4

REPORT INFORMATION
  Report Type: 
  Country: None (occurrence: None)
  Receive Date: 20081126
  Receipt Date: 20081119
  Transmission Date: 20090506
  Serious: Yes (Hospitalization)
  Sender: FDA-Public Use
  Company Number: JP-BAYER-200710585BYL

PATIENT
  Age: 83 Year
  Sex: Female
  Weight: 47 kg

DRUGS (7)
  1. ASPIRIN [Suspect]
     Dosage: TOTAL DAILY DOSE: 100 MG  UNIT DOSE: 100 MG
     Route: 048
     Dates: start: 20050701, end: 20070714
  2. FLUCONAZOLE [Suspect]
     Route: 048
     Dates: start: 20070714, end: 20070718
  3. BENIDIPINE HYDROCHLORIDE [Suspect]
     Route: 048
     Dates: end: 20070714
  4. SPIRONOLACTONE [Suspect]
     Route: 048
     Dates: end: 20070714
  5. DIART [Suspect]
     Route: 048
     Dates: end: 20070714
  6. SILVINOL [Suspect]
     Route: 048
     Dates: end: 20070714
  7. PRAVASTATIN [Suspect]
     Route: 048
     Dates: end: 20070714

REACTIONS (3)
  - GRANULOCYTOPENIA [None]
  - LYMPHOCYTE STIMULATION TEST POSITIVE [None]
  - PYREXIA [None]
